FAERS Safety Report 16081072 (Version 4)
Quarter: 2025Q4

REPORT INFORMATION
  Report Type: Spontaneous
  Country: EU (occurrence: EU)
  Receive Date: 20190316
  Receipt Date: 20251003
  Transmission Date: 20260117
  Serious: Yes (Congenital Anomaly, Other)
  Sender: AUROBINDO
  Company Number: EU-NOVPHSZ-PHHY2019RO043949

PATIENT
  Sex: Female

DRUGS (10)
  1. MEROPENEM [Suspect]
     Active Substance: MEROPENEM
     Indication: Cholangitis acute
     Dosage: MATERNAL DOSE: UNKNOWN
     Route: 064
  2. MEDROL [Suspect]
     Active Substance: METHYLPREDNISOLONE
     Indication: Product used for unknown indication
     Dosage: 16 MILLIGRAM, DAILY
     Route: 064
  3. MEDROL [Suspect]
     Active Substance: METHYLPREDNISOLONE
     Dosage: 24 MILLIGRAM, DAILY
     Route: 064
  4. SOLU-MEDROL [Suspect]
     Active Substance: METHYLPREDNISOLONE SODIUM SUCCINATE
     Indication: Product used for unknown indication
     Dosage: 100 MILLIGRAM, ONCE A DAY
     Route: 064
  5. SOLU-MEDROL [Suspect]
     Active Substance: METHYLPREDNISOLONE SODIUM SUCCINATE
     Dosage: 250 MILLIGRAM, ONCE A DAY
     Route: 064
  6. SOLU-MEDROL [Suspect]
     Active Substance: METHYLPREDNISOLONE SODIUM SUCCINATE
     Dosage: 500 MILLIGRAM, ONCE A DAY (FOR 2 DAYS)
     Route: 064
  7. SOLU-MEDROL [Suspect]
     Active Substance: METHYLPREDNISOLONE SODIUM SUCCINATE
     Dosage: 1000 MILLIGRAM, ONCE A DAY
     Route: 064
  8. TACROLIMUS [Suspect]
     Active Substance: TACROLIMUS
     Indication: Product used for unknown indication
     Dosage: 6 MILLIGRAM, ONCE A DAY
     Route: 064
  9. TACROLIMUS [Suspect]
     Active Substance: TACROLIMUS
     Dosage: 8 MILLIGRAM, ONCE A DAY
     Route: 064
  10. METRONIDAZOLE [Suspect]
     Active Substance: METRONIDAZOLE
     Indication: Cholangitis acute
     Dosage: UNK
     Route: 064

REACTIONS (5)
  - Low birth weight baby [Recovered/Resolved]
  - Congenital choroid plexus cyst [Recovered/Resolved]
  - Calcification of muscle [Recovered/Resolved]
  - Apgar score low [Recovered/Resolved]
  - Foetal exposure during pregnancy [Unknown]
